FAERS Safety Report 22321540 (Version 4)
Quarter: 2024Q2

REPORT INFORMATION
  Report Type: Spontaneous
  Country: US (occurrence: US)
  Receive Date: 20230515
  Receipt Date: 20240415
  Transmission Date: 20240715
  Serious: Yes (Other)
  Sender: FDA-Public Use
  Company Number: US-ABBVIE-4766326

PATIENT
  Age: 74 Year
  Sex: Male

DRUGS (7)
  1. LUPRON [Suspect]
     Active Substance: LEUPROLIDE ACETATE
     Indication: Product used for unknown indication
     Dosage: INFUSION
     Route: 065
  2. VITAMIN C [Concomitant]
     Active Substance: ASCORBIC ACID
     Indication: Product used for unknown indication
     Route: 065
  3. XTANDI [Suspect]
     Active Substance: ENZALUTAMIDE
     Indication: Prostatic specific antigen increased
     Dosage: 4 CAPSULE WITH 40 MG
     Route: 048
     Dates: start: 20221201, end: 20230330
  4. XTANDI [Suspect]
     Active Substance: ENZALUTAMIDE
     Indication: Prostatic specific antigen increased
     Dosage: 3 TABLETS WITH 40 MG
     Route: 048
  5. VITAMIN D [Concomitant]
     Active Substance: VITAMIN D NOS
     Indication: Product used for unknown indication
     Route: 065
  6. AMLODIPINE [Concomitant]
     Active Substance: AMLODIPINE BESYLATE
     Indication: Product used for unknown indication
     Route: 048
  7. ELIQUIS [Concomitant]
     Active Substance: APIXABAN
     Indication: Product used for unknown indication
     Route: 065
     Dates: start: 20230330

REACTIONS (6)
  - Pulmonary thrombosis [Recovering/Resolving]
  - Off label use [Unknown]
  - Dysgeusia [Not Recovered/Not Resolved]
  - Energy increased [Recovering/Resolving]
  - Condition aggravated [Recovering/Resolving]
  - Asthenia [Recovering/Resolving]

NARRATIVE: CASE EVENT DATE: 20221201
